FAERS Safety Report 14162745 (Version 1)
Quarter: 2017Q4

REPORT INFORMATION
  Report Type: Spontaneous
  Country: DE (occurrence: DE)
  Receive Date: 20171106
  Receipt Date: 20171106
  Transmission Date: 20180321
  Serious: Yes (Other)
  Sender: FDA-Public Use
  Company Number: DE-TEVA-806997GER

PATIENT
  Sex: Female

DRUGS (2)
  1. TRANEXAMSAEURE [Suspect]
     Active Substance: TRANEXAMIC ACID
     Route: 065
  2. HEPARIN-NATRIUM-25 000-RATIOPHARM [Suspect]
     Active Substance: HEPARIN SODIUM
     Route: 065
     Dates: start: 20170908

REACTIONS (1)
  - Circulatory collapse [Unknown]
